FAERS Safety Report 6865657-4 (Version None)
Quarter: 2010Q3

REPORT INFORMATION
  Report Type: 
  Country: None (occurrence: None)
  Receive Date: 20100721
  Receipt Date: 20080501
  Transmission Date: 20110219
  Serious: No
  Sender: FDA-Public Use
  Company Number: US-PFIZER INC-2008038876

PATIENT
  Sex: Female
  Weight: 73.9 kg

DRUGS (4)
  1. CHANTIX [Suspect]
     Indication: SMOKING CESSATION THERAPY
     Dates: start: 20080417
  2. NEXIUM [Concomitant]
     Indication: GASTROOESOPHAGEAL REFLUX DISEASE
  3. ESTRADIOL [Concomitant]
  4. VITAMINS [Concomitant]

REACTIONS (2)
  - CONSTIPATION [None]
  - DECREASED APPETITE [None]
